FAERS Safety Report 8004523-8 (Version None)
Quarter: 2011Q4

REPORT INFORMATION
  Report Type: 
  Country: None (occurrence: None)
  Receive Date: 20111221
  Receipt Date: 20111221
  Transmission Date: 20120403
  Serious: Yes (Hospitalization)
  Sender: FDA-Public Use
  Company Number: None

PATIENT
  Age: 29 Year
  Sex: Male
  Weight: 63.3 kg

DRUGS (4)
  1. CARAFATE [Concomitant]
  2. IBUPROFEN [Suspect]
     Indication: HEADACHE
     Dosage: PRN PO RECENT
     Route: 048
  3. IBUPROFEN [Suspect]
     Indication: MUSCULOSKELETAL PAIN
     Dosage: PRN PO RECENT
     Route: 048
  4. ZANTAC [Concomitant]

REACTIONS (2)
  - DUODENAL ULCER [None]
  - GASTROINTESTINAL HAEMORRHAGE [None]
